FAERS Safety Report 9581846 (Version 1)
Quarter: 2013Q4

REPORT INFORMATION
  Report Type: Spontaneous
  Country: BR (occurrence: BR)
  Receive Date: 20131002
  Receipt Date: 20131002
  Transmission Date: 20140711
  Serious: Yes (Other)
  Sender: FDA-Public Use
  Company Number: PHHY2013BR109808

PATIENT
  Sex: Female
  Weight: 85 kg

DRUGS (6)
  1. SIRDALUD [Suspect]
     Indication: ARTHRALGIA
     Dosage: 1 DF (2MG), QD (AT NIGHT)
     Route: 048
  2. SIRDALUD [Suspect]
     Indication: OFF LABEL USE
  3. METFORMIN [Suspect]
     Indication: DIABETES MELLITUS
     Dosage: 1 DF, DAILY
     Route: 048
  4. LOSARTAN [Concomitant]
     Indication: HYPERTENSION
     Dosage: 1 DF (50MG), DAILY
     Route: 048
  5. HYDROCHLOROTHIAZIDE [Concomitant]
     Indication: HYPERTENSION
     Dosage: 1 DF (25MG), DAILY
     Route: 048
  6. ATENOLOL [Concomitant]
     Indication: HYPERTENSION
     Dosage: 1 DF (50MG), DAILY
     Route: 048

REACTIONS (3)
  - Fibromyalgia [Not Recovered/Not Resolved]
  - Arthralgia [Not Recovered/Not Resolved]
  - Hypoglycaemia [Recovered/Resolved]
